FAERS Safety Report 15793061 (Version 1)
Quarter: 2019Q1

REPORT INFORMATION
  Report Type: Spontaneous
  Country: US (occurrence: US)
  Receive Date: 20190103
  Receipt Date: 20190103
  Transmission Date: 20190417
  Serious: No
  Sender: FDA-Public Use
  Company Number: None

PATIENT

DRUGS (3)
  1. DONEPEZIL. [Suspect]
     Active Substance: DONEPEZIL
  2. NAMZARIC [Suspect]
     Active Substance: DONEPEZIL HYDROCHLORIDE\MEMANTINE HYDROCHLORIDE
  3. NAMENDA XR [Suspect]
     Active Substance: MEMANTINE HYDROCHLORIDE

REACTIONS (3)
  - Product dispensing error [None]
  - Transcription medication error [None]
  - Wrong product administered [None]
